FAERS Safety Report 7842804-9 (Version None)
Quarter: 2011Q4

REPORT INFORMATION
  Report Type: 
  Country: None (occurrence: None)
  Receive Date: 20111025
  Receipt Date: 20111012
  Transmission Date: 20120403
  Serious: Yes (Hospitalization, Other)
  Sender: FDA-Public Use
  Company Number: US-BAYER-2011-027456

PATIENT
  Age: 25 Year
  Sex: Female
  Weight: 72.562 kg

DRUGS (5)
  1. DOXYCYCLINE [Concomitant]
     Dosage: 100 MG, UNK
     Dates: start: 20100122, end: 20100526
  2. ACETAMINOPHEN AND HYDROCODONE BITARTRATE [Concomitant]
     Dosage: 500 MG, UNK
     Dates: start: 20100526, end: 20100623
  3. PROMETHAZINE [Concomitant]
     Dosage: 12.5 MG, UNK
     Dates: start: 20100623
  4. YAZ [Suspect]
     Indication: MENSTRUAL CYCLE MANAGEMENT
  5. YAZ [Suspect]
     Indication: CONTRACEPTION
     Dosage: UNK
     Dates: start: 19970101, end: 20100101

REACTIONS (7)
  - BILIARY DYSKINESIA [None]
  - PAIN [None]
  - ABDOMINAL PAIN UPPER [None]
  - GALLBLADDER DISORDER [None]
  - DIARRHOEA [None]
  - CHOLECYSTITIS CHRONIC [None]
  - INJURY [None]
